FAERS Safety Report 25918275 (Version 1)
Quarter: 2025Q4

REPORT INFORMATION
  Report Type: Spontaneous
  Country: QA (occurrence: QA)
  Receive Date: 20251014
  Receipt Date: 20251014
  Transmission Date: 20260118
  Serious: Yes (Hospitalization, Other)
  Sender: MICRO LABS LIMITED
  Company Number: QA-MICRO LABS LIMITED-ML2025-05270

PATIENT
  Age: 29 Year
  Sex: Male

DRUGS (5)
  1. LEVETIRACETAM [Suspect]
     Active Substance: LEVETIRACETAM
     Indication: Seizure
     Dosage: LEVETIRACETAM 500 MG IV TWICE DAILY, THE?IV FORMULATION WAS CONTINUED FOR THREE DAYS
     Route: 042
  2. LEVETIRACETAM [Suspect]
     Active Substance: LEVETIRACETAM
     Dosage: ORAL LEVETIRACETAM 500 MG BID
     Route: 048
  3. LORAZEPAM [Concomitant]
     Active Substance: LORAZEPAM
     Indication: Seizure
     Dosage: A SINGLE DOSE
  4. SERTRALINE [Concomitant]
     Active Substance: SERTRALINE HYDROCHLORIDE
     Indication: Psychiatric symptom
     Dosage: SERTRALINE WAS 50 MG ORAL DAILY,
     Route: 048
  5. CLOZAPINE [Concomitant]
     Active Substance: CLOZAPINE
     Indication: Psychiatric symptom
     Dosage: 0.5 MG ORAL ONCE A DAY
     Route: 048

REACTIONS (1)
  - Rhabdomyolysis [Recovered/Resolved]
